FAERS Safety Report 5787815-2 (Version None)
Quarter: 2008Q2

REPORT INFORMATION
  Report Type: 
  Country: None (occurrence: None)
  Receive Date: 20080625
  Receipt Date: 20080625
  Transmission Date: 20081010
  Serious: Yes (Hospitalization)
  Sender: FDA-Public Use
  Company Number: PHHO2005FR10514

PATIENT
  Age: 62 Year
  Sex: Female

DRUGS (1)
  1. ZOLEDRONIC ACID [Suspect]
     Indication: OSTEOPENIA
     Dosage: UNK
     Route: 042
     Dates: start: 20050104

REACTIONS (3)
  - FALL [None]
  - FRACTURE TREATMENT [None]
  - WRIST FRACTURE [None]
